FAERS Safety Report 6298380-8 (Version None)
Quarter: 2009Q3

REPORT INFORMATION
  Report Type: 
  Country: None (occurrence: None)
  Receive Date: 20090805
  Receipt Date: 20090722
  Transmission Date: 20100115
  Serious: Yes (Hospitalization)
  Sender: FDA-Public Use
  Company Number: AU-GENENTECH-284446

PATIENT
  Sex: Female
  Weight: 81.5 kg

DRUGS (10)
  1. BEVACIZUMAB [Suspect]
     Indication: BREAST CANCER
     Dosage: 1230 MG, Q3W
     Route: 042
     Dates: start: 20090313
  2. FLUOROURACIL [Suspect]
     Indication: BREAST CANCER
     Dosage: 950 MG, Q3W
     Route: 042
     Dates: start: 20090331
  3. EPIRUBICIN [Suspect]
     Indication: BREAST CANCER
     Dosage: 190 MG, Q3W
     Route: 042
     Dates: start: 20090331
  4. CYCLOPHOSPHAMIDE [Suspect]
     Indication: BREAST CANCER
     Dosage: 950 MG, Q3W
     Route: 042
     Dates: start: 20090331
  5. DOCETAXEL [Suspect]
     Indication: BREAST CANCER
     Dosage: 190 MG, Q3W
     Route: 042
     Dates: start: 20090611, end: 20090630
  6. NEXIUM [Concomitant]
     Indication: DRUG USE FOR UNKNOWN INDICATION
     Dosage: UNK
     Dates: start: 20060101
  7. MERSYNDOL [Concomitant]
     Indication: DRUG USE FOR UNKNOWN INDICATION
     Dosage: UNK
     Dates: start: 19950101
  8. DEXAMETHASONE [Concomitant]
     Indication: DRUG USE FOR UNKNOWN INDICATION
     Dosage: UNK
     Dates: start: 20081116
  9. MEXAFORME [Concomitant]
     Indication: DRUG USE FOR UNKNOWN INDICATION
     Dosage: UNK
     Dates: start: 19950101
  10. IBUPROFEN [Concomitant]
     Indication: DRUG USE FOR UNKNOWN INDICATION
     Dosage: UNK
     Dates: start: 20090501

REACTIONS (2)
  - MUCOSAL INFLAMMATION [None]
  - NEUTROPENIA [None]
